FAERS Safety Report 6791247-8 (Version None)
Quarter: 2010Q2

REPORT INFORMATION
  Report Type: 
  Country: None (occurrence: None)
  Receive Date: 20100624
  Receipt Date: 20100610
  Transmission Date: 20101027
  Serious: Yes (Other)
  Sender: FDA-Public Use
  Company Number: GB-MYLANLABS-2010S1005415

PATIENT
  Age: 66 Year
  Sex: Male

DRUGS (9)
  1. SIMVASTATIN [Suspect]
     Indication: HYPERLIPIDAEMIA
     Dates: start: 20100220, end: 20100318
  2. SIMVASTATIN [Suspect]
     Indication: MYOCARDIAL ISCHAEMIA
     Dates: start: 20100220, end: 20100318
  3. ASPIRIN [Concomitant]
     Indication: DRUG USE FOR UNKNOWN INDICATION
  4. BISOPROLOL [Concomitant]
     Indication: DRUG USE FOR UNKNOWN INDICATION
  5. CLOPIDOGREL [Concomitant]
     Indication: DRUG USE FOR UNKNOWN INDICATION
  6. PREDNISOLONE [Concomitant]
     Indication: CHRONIC OBSTRUCTIVE PULMONARY DISEASE
  7. RAMIPRIL [Concomitant]
     Indication: DRUG USE FOR UNKNOWN INDICATION
  8. SERETIDE [Concomitant]
     Indication: DRUG USE FOR UNKNOWN INDICATION
     Route: 055
  9. TIOTROPIUM BROMIDE [Concomitant]
     Indication: DRUG USE FOR UNKNOWN INDICATION
     Route: 055

REACTIONS (7)
  - BLOOD CREATINE PHOSPHOKINASE INCREASED [None]
  - FATIGUE [None]
  - LIVER FUNCTION TEST ABNORMAL [None]
  - MUSCULAR WEAKNESS [None]
  - MYALGIA [None]
  - MYOSITIS [None]
  - RENAL FAILURE ACUTE [None]
